FAERS Safety Report 8393531-3 (Version None)
Quarter: 2012Q2

REPORT INFORMATION
  Report Type: 
  Country: None (occurrence: None)
  Receive Date: 20120529
  Receipt Date: 20120516
  Transmission Date: 20120825
  Serious: Yes (Other)
  Sender: FDA-Public Use
  Company Number: US-MYLANLABS-2012S1010239

PATIENT
  Age: 36 Year
  Sex: Male

DRUGS (4)
  1. LORAZEPAM [Concomitant]
     Route: 065
  2. MIDAZOLAM [Concomitant]
     Indication: COMPLEX REGIONAL PAIN SYNDROME
     Dosage: 35 MG/H
     Route: 041
     Dates: start: 20100101
  3. CHLORDIAZEPOXIDE [Concomitant]
     Route: 065
  4. KETAMINE HCL [Suspect]
     Indication: COMPLEX REGIONAL PAIN SYNDROME
     Dosage: 700 MG/H
     Route: 041
     Dates: start: 20100101

REACTIONS (7)
  - COGNITIVE DISORDER [None]
  - PSYCHOTIC DISORDER [None]
  - INSOMNIA [None]
  - MENTAL DISORDER [None]
  - HALLUCINATION, VISUAL [None]
  - ANXIETY [None]
  - AFFECT LABILITY [None]
